FAERS Safety Report 14450419 (Version 2)
Quarter: 2018Q1

REPORT INFORMATION
  Report Type: Spontaneous
  Country: FR (occurrence: FR)
  Receive Date: 20180129
  Receipt Date: 20180221
  Transmission Date: 20180509
  Serious: Yes (Hospitalization)
  Sender: FDA-Public Use
  Company Number: FR-CONCORDIA PHARMACEUTICALS INC.-GSH201801-000381

PATIENT
  Age: 62 Year
  Sex: Female

DRUGS (7)
  1. BIPROFENID [Concomitant]
     Active Substance: KETOPROFEN
  2. PREDNISOLONE. [Concomitant]
     Active Substance: PREDNISOLONE
  3. PLAQUENIL [Suspect]
     Active Substance: HYDROXYCHLOROQUINE SULFATE
     Indication: SJOGREN^S SYNDROME
     Route: 048
     Dates: start: 20171128, end: 20180104
  4. LAMALINE [Concomitant]
     Active Substance: ACETAMINOPHEN\CAFFEINE\OPIUM
  5. EUTHYRAL [Concomitant]
     Active Substance: LEVOTHYROXINE SODIUM\LIOTHYRONINE SODIUM
  6. EFFERALGAN [Concomitant]
     Active Substance: ACETAMINOPHEN
  7. LEVOCETIRIZINE [Concomitant]
     Active Substance: LEVOCETIRIZINE

REACTIONS (9)
  - Lacrimation increased [Recovered/Resolved]
  - Decreased appetite [Recovering/Resolving]
  - Dyspnoea [Recovered/Resolved]
  - Pruritus [Recovered/Resolved]
  - Muscular weakness [Recovered/Resolved]
  - Haemorrhoidal haemorrhage [Recovered/Resolved]
  - Gastrointestinal disorder [Recovered/Resolved]
  - Tinnitus [Recovering/Resolving]
  - Vision blurred [Recovering/Resolving]

NARRATIVE: CASE EVENT DATE: 20171129
